FAERS Safety Report 18084945 (Version 1)
Quarter: 2020Q3

REPORT INFORMATION
  Report Type: Spontaneous
  Country: US (occurrence: US)
  Receive Date: 20200728
  Receipt Date: 20200728
  Transmission Date: 20201103
  Serious: No
  Sender: FDA-Public Use
  Company Number: None

PATIENT
  Age: 68 Year
  Sex: Female
  Weight: 61.65 kg

DRUGS (2)
  1. PREVIDENT [Suspect]
     Active Substance: SODIUM FLUORIDE
     Indication: DRY MOUTH
     Dosage: ?          OTHER STRENGTH:PPM;?
  2. CREST GUM DETOXIFY [Suspect]
     Active Substance: STANNOUS FLUORIDE
     Indication: GINGIVITIS

REACTIONS (2)
  - Dysphagia [None]
  - Dry mouth [None]

NARRATIVE: CASE EVENT DATE: 20191215
